FAERS Safety Report 19477218 (Version 1)
Quarter: 2021Q2

REPORT INFORMATION
  Report Type: Spontaneous
  Country: US (occurrence: US)
  Receive Date: 20210630
  Receipt Date: 20210630
  Transmission Date: 20210717
  Serious: No
  Sender: FDA-Public Use
  Company Number: None

PATIENT
  Age: 67 Year
  Sex: Male
  Weight: 93 kg

DRUGS (1)
  1. PEMBROLIZUMAB [PEMBROLIZUMAB 50MG/VIL INJ] [Suspect]
     Active Substance: PEMBROLIZUMAB
     Indication: BLADDER CANCER
     Dosage: ?          OTHER FREQUENCY:UD;OTHER ROUTE:IV?
     Route: 042
     Dates: start: 20201021, end: 20210407

REACTIONS (1)
  - Colitis [None]

NARRATIVE: CASE EVENT DATE: 20210615
